FAERS Safety Report 9114467 (Version 1)
Quarter: 2013Q1

REPORT INFORMATION
  Report Type: Spontaneous
  Country: US (occurrence: None)
  Receive Date: 20130220
  Receipt Date: 20130220
  Transmission Date: 20140127
  Serious: Yes (Other)
  Sender: FDA-Public Use
  Company Number: None

PATIENT
  Age: 45 Year
  Sex: Female
  Weight: 56.7 kg

DRUGS (1)
  1. VALCYCLOVIR [Suspect]
     Route: 048
     Dates: start: 20110105, end: 20110107

REACTIONS (3)
  - Rash [None]
  - Urticaria [None]
  - Dyspnoea [None]
